FAERS Safety Report 13910586 (Version 1)
Quarter: 2017Q3

REPORT INFORMATION
  Report Type: Spontaneous
  Country: US (occurrence: US)
  Receive Date: 20170826
  Receipt Date: 20170826
  Transmission Date: 20171127
  Serious: Yes (Hospitalization)
  Sender: FDA-Public Use
  Company Number: None

PATIENT
  Sex: Female
  Weight: 54 kg

DRUGS (3)
  1. TERBUTALINE [Suspect]
     Active Substance: TERBUTALINE
     Indication: PREMATURE DELIVERY
     Route: 030
     Dates: start: 20080806, end: 20081119
  2. PROBIOTIC [Concomitant]
     Active Substance: PROBIOTICS NOS
  3. TERBUTALINE [Suspect]
     Active Substance: TERBUTALINE
     Indication: PROPHYLAXIS
     Route: 030
     Dates: start: 20080806, end: 20081119

REACTIONS (3)
  - Heart rate abnormal [None]
  - Premature delivery [None]
  - Drug ineffective [None]

NARRATIVE: CASE EVENT DATE: 20170818
